FAERS Safety Report 5568274-1 (Version None)
Quarter: 2007Q4

REPORT INFORMATION
  Report Type: 
  Country: None (occurrence: None)
  Receive Date: 20071130
  Receipt Date: 20070924
  Transmission Date: 20080405
  Serious: No
  Sender: FDA-Public Use
  Company Number: US200708005460

PATIENT
  Age: 61 Year
  Sex: Male
  Weight: 80.3 kg

DRUGS (5)
  1. BYETTA [Suspect]
     Indication: TYPE 2 DIABETES MELLITUS
     Dosage: SEE IMAGE, SUBCUTANEOUS
     Route: 058
     Dates: start: 20060101, end: 20060101
  2. BYETTA [Suspect]
     Indication: TYPE 2 DIABETES MELLITUS
     Dosage: SEE IMAGE, SUBCUTANEOUS
     Route: 058
     Dates: start: 20070909, end: 20070901
  3. BYETTA [Suspect]
     Indication: TYPE 2 DIABETES MELLITUS
     Dosage: SEE IMAGE, SUBCUTANEOUS
     Route: 058
     Dates: start: 20050101
  4. BYETTA [Suspect]
     Indication: TYPE 2 DIABETES MELLITUS
     Dosage: SEE IMAGE, SUBCUTANEOUS
     Route: 058
     Dates: start: 20070901
  5. EXENATIDE 10MCG PEN, DISPOSABLE DEVICE (EXENATIDE PEN (10MCG)) PEN,DIS [Concomitant]

REACTIONS (10)
  - BLOOD GLUCOSE INCREASED [None]
  - DIARRHOEA [None]
  - DRUG EFFECT DECREASED [None]
  - ENDODONTIC PROCEDURE [None]
  - NAUSEA [None]
  - ORAL SURGERY [None]
  - PROCEDURAL PAIN [None]
  - STOMACH DISCOMFORT [None]
  - TOOTH FRACTURE [None]
  - WEIGHT DECREASED [None]
